FAERS Safety Report 7216945-3 (Version None)
Quarter: 2011Q1

REPORT INFORMATION
  Report Type: 
  Country: None (occurrence: None)
  Receive Date: 20110110
  Receipt Date: 20101230
  Transmission Date: 20110831
  Serious: Yes (Other)
  Sender: FDA-Public Use
  Company Number: CA-JNJFOC-20090707041

PATIENT
  Sex: Female
  Weight: 105.3 kg

DRUGS (3)
  1. REMICADE [Suspect]
     Indication: RHEUMATOID ARTHRITIS
     Dosage: 43 DOSES
     Route: 042
     Dates: start: 20040201
  2. METHOTREXATE [Concomitant]
  3. PREDNISONE [Concomitant]

REACTIONS (4)
  - MUSCLE TIGHTNESS [None]
  - FEELING ABNORMAL [None]
  - HYPERHIDROSIS [None]
  - CHEST PAIN [None]
